FAERS Safety Report 8132980-5 (Version None)
Quarter: 2012Q1

REPORT INFORMATION
  Report Type: 
  Country: None (occurrence: None)
  Receive Date: 20120213
  Receipt Date: 20120104
  Transmission Date: 20120608
  Serious: Yes (Death)
  Sender: FDA-Public Use
  Company Number: US-COVIDIEN/TYCO HEALTHCARE/MALLINCKRODT-T201200221

PATIENT
  Age: 54 Year
  Sex: Male

DRUGS (5)
  1. METHADOSE [Suspect]
     Route: 048
  2. OXYCODONE/ACETAMINOPHEN [Suspect]
     Route: 048
  3. OXYCODONE HCL [Suspect]
     Route: 048
  4. IBUPROFEN [Suspect]
     Route: 048
  5. NADOLOL [Suspect]
     Route: 048

REACTIONS (2)
  - COMPLETED SUICIDE [None]
  - CARDIO-RESPIRATORY ARREST [None]
